FAERS Safety Report 22633932 (Version 1)
Quarter: 2023Q2

REPORT INFORMATION
  Report Type: Spontaneous
  Country: US (occurrence: US)
  Receive Date: 20230623
  Receipt Date: 20230623
  Transmission Date: 20230722
  Serious: No
  Sender: FDA-Public Use
  Company Number: US-BAUSCH-BL-2023-009514

PATIENT
  Age: 67 Year
  Sex: Male

DRUGS (3)
  1. FLUNISOLIDE [Suspect]
     Active Substance: FLUNISOLIDE
     Indication: Hypersensitivity
     Dosage: 1 DOSE, BID
     Route: 045
  2. FLUNISOLIDE [Suspect]
     Active Substance: FLUNISOLIDE
     Route: 045
     Dates: start: 2023
  3. IPRATROPIUM BROMIDE [Suspect]
     Active Substance: IPRATROPIUM BROMIDE\IPRATROPIUM BROMIDE ANHYDROUS
     Indication: Product used for unknown indication
     Route: 045
     Dates: start: 20230606

REACTIONS (2)
  - Nasopharyngitis [Not Recovered/Not Resolved]
  - Insomnia [Unknown]

NARRATIVE: CASE EVENT DATE: 20230101
